FAERS Safety Report 10018008 (Version 6)
Quarter: 2014Q2

REPORT INFORMATION
  Report Type: Spontaneous
  Country: JP (occurrence: JP)
  Receive Date: 20140318
  Receipt Date: 20140612
  Transmission Date: 20141212
  Serious: Yes (Hospitalization, Other)
  Sender: FDA-Public Use
  Company Number: JP-AMGEN-JPNSP2014018501

PATIENT
  Age: 72 Year
  Sex: Female
  Weight: 56.2 kg

DRUGS (5)
  1. ENBREL [Suspect]
     Indication: RHEUMATOID ARTHRITIS
     Dosage: 25 MG, CYCLIC
     Route: 058
     Dates: start: 20070731
  2. METOLATE [Suspect]
     Indication: RHEUMATOID ARTHRITIS
     Dosage: 6 MG, WEEKLY
     Route: 048
     Dates: end: 20140312
  3. BUCILLAMINE [Concomitant]
     Indication: RHEUMATOID ARTHRITIS
     Dosage: 100 MG, DAILY
     Route: 048
     Dates: start: 198404
  4. FOLIAMIN [Concomitant]
     Indication: RHEUMATOID ARTHRITIS
     Dosage: 5 MG, WEEKLY
     Route: 048
     Dates: end: 20140312
  5. PIRENZEPINE [Concomitant]
     Indication: GASTRITIS
     Dosage: 25 MG, 1X/DAY
     Route: 048
     Dates: start: 198404

REACTIONS (1)
  - Bladder transitional cell carcinoma [Not Recovered/Not Resolved]
